FAERS Safety Report 8458879-2 (Version None)
Quarter: 2012Q2

REPORT INFORMATION
  Report Type: 
  Country: None (occurrence: None)
  Receive Date: 20120622
  Receipt Date: 20120612
  Transmission Date: 20120825
  Serious: Yes (Hospitalization)
  Sender: FDA-Public Use
  Company Number: US-SANOFI-AVENTIS-2012SA042186

PATIENT
  Age: 76 Year
  Sex: Female

DRUGS (3)
  1. PLAVIX [Suspect]
     Indication: STENT PLACEMENT
     Route: 048
  2. SIMVASTATIN [Concomitant]
  3. PLAVIX [Suspect]
     Route: 048
     Dates: start: 19960101

REACTIONS (2)
  - SYNCOPE [None]
  - MELAENA [None]
